FAERS Safety Report 16396924 (Version 1)
Quarter: 2019Q2

REPORT INFORMATION
  Report Type: Spontaneous
  Country: US (occurrence: US)
  Receive Date: 20190606
  Receipt Date: 20190606
  Transmission Date: 20190711
  Serious: No
  Sender: FDA-Public Use
  Company Number: US-GLAXOSMITHKLINE-US2019099973

PATIENT
  Sex: Male

DRUGS (1)
  1. VENTOLIN HFA [Suspect]
     Active Substance: ALBUTEROL SULFATE
     Indication: DYSPNOEA
     Dosage: 1 PUFF(S), (EVERY 4 TO 6 HOURS)
     Route: 048

REACTIONS (3)
  - Wrong technique in device usage process [Recovered/Resolved]
  - Underdose [Recovered/Resolved]
  - Product storage error [Unknown]
